FAERS Safety Report 18932514 (Version 1)
Quarter: 2021Q1

REPORT INFORMATION
  Report Type: Spontaneous
  Country: US (occurrence: US)
  Receive Date: 20210223
  Receipt Date: 20210223
  Transmission Date: 20210420
  Serious: Yes (Other)
  Sender: FDA-Public Use
  Company Number: None

PATIENT
  Age: 50 Year
  Sex: Female

DRUGS (1)
  1. MONTELUKAST [Suspect]
     Active Substance: MONTELUKAST SODIUM
     Indication: ASTHMA
     Route: 048
     Dates: start: 20120530, end: 20161118

REACTIONS (4)
  - Product substitution issue [None]
  - Drug ineffective [None]
  - Rash [None]
  - Wheezing [None]

NARRATIVE: CASE EVENT DATE: 201611
